FAERS Safety Report 14522913 (Version 2)
Quarter: 2019Q1

REPORT INFORMATION
  Report Type: Report from Study
  Country: US (occurrence: US)
  Receive Date: 20180212
  Receipt Date: 20190215
  Transmission Date: 20190417
  Serious: Yes (Hospitalization, Other)
  Sender: FDA-Public Use
  Company Number: US-AMAG PHARMACEUTICALS, INC.-AMAG201704084

PATIENT

DRUGS (2)
  1. MAKENA [Suspect]
     Active Substance: HYDROXYPROGESTERONE CAPROATE
     Indication: PREMATURE DELIVERY
     Dosage: 250 MG/ML, WEEKLY
     Route: 030
     Dates: start: 20171026
  2. FERRALET [Concomitant]
     Indication: ANAEMIA
     Dosage: 90 MG (1 TAB), QD
     Route: 065
     Dates: start: 20180120

REACTIONS (1)
  - Cervical incompetence [Unknown]

NARRATIVE: CASE EVENT DATE: 20171215
